FAERS Safety Report 16145413 (Version 1)
Quarter: 2019Q2

REPORT INFORMATION
  Report Type: Spontaneous
  Country: US (occurrence: US)
  Receive Date: 20190402
  Receipt Date: 20190402
  Transmission Date: 20190711
  Serious: Yes (Hospitalization, Other)
  Sender: FDA-Public Use
  Company Number: US-GLAXOSMITHKLINE-US2019GSK055320

PATIENT
  Age: 79 Year
  Sex: Female
  Weight: 72.56 kg

DRUGS (2)
  1. DIOVAN [Suspect]
     Active Substance: VALSARTAN
     Indication: HYPERTENSION
     Dosage: 80 MG, QD
     Route: 048
     Dates: start: 197801, end: 20180213
  2. COREG [Suspect]
     Active Substance: CARVEDILOL
     Indication: ATRIAL FIBRILLATION
     Dosage: UNK, BID
     Route: 048
     Dates: start: 201301

REACTIONS (7)
  - Speech disorder [Recovered/Resolved]
  - Weight decreased [Unknown]
  - Blood cholesterol decreased [Unknown]
  - Hypotension [Unknown]
  - Cerebrovascular accident [Recovered/Resolved]
  - Fatigue [Unknown]
  - Confusional state [Unknown]

NARRATIVE: CASE EVENT DATE: 20180212
